FAERS Safety Report 22197557 (Version 1)
Quarter: 2023Q2

REPORT INFORMATION
  Report Type: Spontaneous
  Country: US (occurrence: None)
  Receive Date: 20230411
  Receipt Date: 20230411
  Transmission Date: 20230722
  Serious: Yes (Hospitalization)
  Sender: FDA-Public Use
  Company Number: None

PATIENT
  Sex: Male

DRUGS (3)
  1. MYCOPHENOLIC ACID [Suspect]
     Active Substance: MYCOPHENOLIC ACID
     Indication: Renal transplant
     Dosage: 180 MG ORAL??TAKE 3 TABLETS BY MOUTH IN THE MORNING AND AGAIN AT BEDTIME?
     Route: 048
     Dates: start: 20230203
  2. TRELEGY AER [Concomitant]
  3. TACROLIMUS [Concomitant]
     Active Substance: TACROLIMUS

REACTIONS (2)
  - Hypertension [None]
  - Protein urine present [None]
